FAERS Safety Report 16832787 (Version 1)
Quarter: 2019Q3

REPORT INFORMATION
  Report Type: Spontaneous
  Country: US (occurrence: US)
  Receive Date: 20190730
  Receipt Date: 20190730
  Transmission Date: 20191005
  Serious: No
  Sender: FDA-Public Use
  Company Number: None

PATIENT
  Age: 54 Year
  Sex: Female

DRUGS (3)
  1. URSODIOL. [Concomitant]
     Active Substance: URSODIOL
  2. OCALIVA [Suspect]
     Active Substance: OBETICHOLIC ACID
     Indication: PRIMARY BILIARY CHOLANGITIS
     Route: 048
     Dates: start: 20190427
  3. PROGESTERONE CAP [Concomitant]
     Active Substance: PROGESTERONE

REACTIONS (3)
  - Pruritus [None]
  - Ear pruritus [None]
  - Nasal pruritus [None]

NARRATIVE: CASE EVENT DATE: 20190630
